FAERS Safety Report 16769635 (Version 1)
Quarter: 2019Q3

REPORT INFORMATION
  Report Type: Spontaneous
  Country: IT (occurrence: IT)
  Receive Date: 20190903
  Receipt Date: 20190903
  Transmission Date: 20191005
  Serious: Yes (Hospitalization, Other)
  Sender: FDA-Public Use
  Company Number: IT-BAXTER-2019BAX016811

PATIENT
  Age: 17 Year
  Sex: Male

DRUGS (2)
  1. PREDNISONE. [Suspect]
     Active Substance: PREDNISONE
     Indication: ANTIPHOSPHOLIPID SYNDROME
     Dosage: 2 MG/KG, QD
     Route: 065
  2. ENDOXAN BAXTER [Suspect]
     Active Substance: CYCLOPHOSPHAMIDE
     Indication: ANTIPHOSPHOLIPID SYNDROME
     Dosage: 500 MG/M2, QMO
     Route: 065

REACTIONS (6)
  - Anophthalmos [Unknown]
  - Spinal compression fracture [Recovered/Resolved]
  - Drug ineffective [Unknown]
  - Cushingoid [Recovered/Resolved]
  - Product use in unapproved indication [Unknown]
  - Therapy partial responder [Recovered/Resolved]
